FAERS Safety Report 4717498-1 (Version None)
Quarter: 2005Q3

REPORT INFORMATION
  Report Type: 
  Country: None (occurrence: None)
  Receive Date: 20050715
  Receipt Date: 20050630
  Transmission Date: 20060218
  Serious: Yes (Hospitalization)
  Sender: FDA-Public Use
  Company Number: 2005BI010965

PATIENT
  Age: 46 Year
  Sex: Male

DRUGS (2)
  1. AVONEX [Suspect]
     Indication: MULTIPLE SCLEROSIS
     Dosage: 30 UG/QW/IM
     Route: 030
     Dates: start: 20040909, end: 20050617
  2. AVONEX [Suspect]

REACTIONS (2)
  - CONVULSION [None]
  - LUNG NEOPLASM MALIGNANT [None]
